FAERS Safety Report 9019694 (Version 1)
Quarter: 2013Q1

REPORT INFORMATION
  Report Type: Spontaneous
  Country: US (occurrence: US)
  Receive Date: 20130118
  Receipt Date: 20130118
  Transmission Date: 20140127
  Serious: Yes (Other)
  Sender: FDA-Public Use
  Company Number: PHEH2012US023695

PATIENT
  Age: 48 None
  Sex: Female
  Weight: 63.49 kg

DRUGS (4)
  1. GILENYA [Suspect]
     Indication: RELAPSING-REMITTING MULTIPLE SCLEROSIS
     Dosage: 0.5 MG, QD
     Route: 048
     Dates: start: 20121107, end: 20121121
  2. FISH OIL [Concomitant]
  3. MULTI-VIT [Concomitant]
  4. ANTIVERT [Concomitant]

REACTIONS (5)
  - Anxiety [Recovered/Resolved]
  - Depression [Recovered/Resolved]
  - Feeling abnormal [Recovered/Resolved]
  - Hypertension [Recovered/Resolved]
  - Expired drug administered [Unknown]
